FAERS Safety Report 15755912 (Version 1)
Quarter: 2018Q4

REPORT INFORMATION
  Report Type: Spontaneous
  Country: US (occurrence: US)
  Receive Date: 20181224
  Receipt Date: 20181224
  Transmission Date: 20190205
  Serious: No
  Sender: FDA-Public Use
  Company Number: None

PATIENT
  Age: 79 Year
  Sex: Female

DRUGS (1)
  1. VENLAFAXINE ER [Suspect]
     Active Substance: VENLAFAXINE HYDROCHLORIDE
     Route: 048
     Dates: start: 20181206, end: 20181220

REACTIONS (5)
  - Headache [None]
  - Nausea [None]
  - Hyperhidrosis [None]
  - Disturbance in attention [None]
  - Asthenia [None]

NARRATIVE: CASE EVENT DATE: 20181220
